FAERS Safety Report 11391558 (Version 1)
Quarter: 2015Q3

REPORT INFORMATION
  Report Type: Spontaneous
  Country: ES (occurrence: ES)
  Receive Date: 20150818
  Receipt Date: 20150818
  Transmission Date: 20151125
  Serious: Yes (Other)
  Sender: FDA-Public Use
  Company Number: ES-SA-2015SA122211

PATIENT
  Age: 48 Year
  Sex: Female

DRUGS (11)
  1. ZALTRAP [Suspect]
     Active Substance: ZIV-AFLIBERCEPT
     Indication: RECTOSIGMOID CANCER METASTATIC
     Dosage: 2? CICLO
     Route: 042
     Dates: start: 20150701, end: 20150701
  2. IRINOTECAN [Concomitant]
     Active Substance: IRINOTECAN
     Indication: RECTOSIGMOID CANCER METASTATIC
     Dosage: 3? CICLO
     Route: 042
     Dates: start: 20150617, end: 20150617
  3. FLUOROURACILO [Concomitant]
     Active Substance: FLUOROURACIL
     Indication: RECTOSIGMOID CANCER METASTATIC
     Dosage: 3? CICLO.
     Route: 042
     Dates: start: 20150616, end: 20150616
  4. METAMIZOLE [Concomitant]
     Active Substance: METAMIZOLE
     Route: 048
  5. ZALTRAP [Suspect]
     Active Substance: ZIV-AFLIBERCEPT
     Indication: RECTOSIGMOID CANCER METASTATIC
     Dosage: 2? CICLO
     Route: 042
     Dates: start: 20150617, end: 20150617
  6. IRINOTECAN [Concomitant]
     Active Substance: IRINOTECAN
     Indication: RECTOSIGMOID CANCER METASTATIC
     Dosage: 3? CICLO
     Route: 042
     Dates: start: 20150715, end: 20150715
  7. PREGABALIN. [Concomitant]
     Active Substance: PREGABALIN
     Route: 048
  8. IRINOTECAN [Concomitant]
     Active Substance: IRINOTECAN
     Indication: RECTOSIGMOID CANCER METASTATIC
     Dosage: 3? CICLO
     Route: 042
  9. BAZEDOXIFENE ACETATE [Concomitant]
     Active Substance: BAZEDOXIFENE ACETATE
     Dosage: REGIMEN:?1?EVERY?2  [DAYS]
     Route: 048
  10. FENTANYL. [Concomitant]
     Active Substance: FENTANYL
     Dosage: REGIMEN:?1?EVERY?3  [DAYS]
     Route: 062
  11. FLUOROURACILO [Concomitant]
     Active Substance: FLUOROURACIL
     Indication: RECTOSIGMOID CANCER METASTATIC
     Dosage: 3? CICLO
     Route: 042
     Dates: start: 20150617, end: 20150617

REACTIONS (2)
  - Anal fissure [Unknown]
  - Proctalgia [Unknown]

NARRATIVE: CASE EVENT DATE: 20150622
